FAERS Safety Report 10517772 (Version 2)
Quarter: 2014Q4

REPORT INFORMATION
  Report Type: Spontaneous
  Country: BR (occurrence: BR)
  Receive Date: 20141015
  Receipt Date: 20141027
  Transmission Date: 20150528
  Serious: Yes (Life-Threatening)
  Sender: FDA-Public Use
  Company Number: PHHY2014BR133082

PATIENT
  Age: 68 Year
  Sex: Female

DRUGS (9)
  1. ATENOLOL SANDOZ [Suspect]
     Active Substance: ATENOLOL
     Indication: PRODUCT USED FOR UNKNOWN INDICATION
     Dosage: 25 MG, BID, ONE TABLET IN MORNING AND OTHER IN EVENING
     Route: 048
  2. AMLODIPINE BESYLATE SANDOZ [Suspect]
     Active Substance: AMLODIPINE BESYLATE
     Indication: STRESS
     Dosage: 5 MG, BID, ONE TABLET IN MORNING AND OTHER IN THE EVENING
     Route: 048
  3. BROMAZEPAM [Concomitant]
     Active Substance: BROMAZEPAM
     Indication: PRODUCT USED FOR UNKNOWN INDICATION
     Route: 048
  4. OSTEOGLIC [Concomitant]
     Indication: PRODUCT USED FOR UNKNOWN INDICATION
     Route: 048
  5. NIFEDIPINE. [Concomitant]
     Active Substance: NIFEDIPINE
     Indication: PRODUCT USED FOR UNKNOWN INDICATION
     Route: 065
  6. CALCIUM [Concomitant]
     Active Substance: CALCIUM
     Indication: PRODUCT USED FOR UNKNOWN INDICATION
     Route: 048
  7. CIPROFIBRATE [Concomitant]
     Active Substance: CIPROFIBRATE
     Indication: BLOOD CHOLESTEROL
     Route: 048
  8. PANTOPRAZOLE [Concomitant]
     Active Substance: PANTOPRAZOLE SODIUM
     Indication: PRODUCT USED FOR UNKNOWN INDICATION
     Route: 048
  9. LOSARTAN [Concomitant]
     Active Substance: LOSARTAN
     Indication: PRODUCT USED FOR UNKNOWN INDICATION
     Route: 065

REACTIONS (10)
  - Malaise [Recovering/Resolving]
  - Peripheral swelling [Unknown]
  - Feeling hot [Unknown]
  - Skin discolouration [Unknown]
  - Drug effect incomplete [Recovering/Resolving]
  - Movement disorder [Unknown]
  - Fatigue [Recovering/Resolving]
  - Feeling abnormal [Recovered/Resolved]
  - Hypokalaemia [Unknown]
  - Back pain [Unknown]
